FAERS Safety Report 7883940 (Version 4)
Quarter: 2013Q2

REPORT INFORMATION
  Report Type: Report from Study
  Country: SE (occurrence: SE)
  Receive Date: 20110404
  Receipt Date: 20130510
  Transmission Date: 20140414
  Serious: Yes (Hospitalization)
  Sender: FDA-Public Use
  Company Number: SE-B.I. PHARMACEUTICALS,INC./RIDGEFIELD-2011-SW-00128SW

PATIENT
  Age: 88 Year
  Sex: Female
  Weight: 47 kg

DRUGS (4)
  1. PRADAXA [Suspect]
     Indication: THROMBOSIS PROPHYLAXIS
     Dosage: 150 MG
     Route: 048
     Dates: start: 20110316, end: 20110323
  2. TROMBYL [Suspect]
     Indication: PROPHYLAXIS
     Dosage: 75 MG
     Route: 048
  3. ARCOXIA [Suspect]
     Indication: ARTHRALGIA
     Dosage: 90 MG
     Route: 048
     Dates: start: 20110317, end: 20110324
  4. REPORTED IN NARRATIVE [Concomitant]

REACTIONS (3)
  - Diverticulitis [Recovered/Resolved]
  - Gastric ulcer [Recovered/Resolved]
  - Arthralgia [Recovered/Resolved]
